FAERS Safety Report 12967779 (Version 1)
Quarter: 2016Q4

REPORT INFORMATION
  Report Type: Spontaneous
  Country: US (occurrence: US)
  Receive Date: 20161122
  Receipt Date: 20161122
  Transmission Date: 20170207
  Serious: Yes (Other)
  Sender: FDA-Public Use
  Company Number: None

PATIENT
  Age: 49 Year
  Sex: Male

DRUGS (1)
  1. MILRINONE LACTATE. [Suspect]
     Active Substance: MILRINONE LACTATE
     Indication: CATHETERISATION CARDIAC
     Dosage: ?          OTHER FREQUENCY:INTRAPROCEDURAL;?
     Route: 041

REACTIONS (1)
  - Drug ineffective [None]

NARRATIVE: CASE EVENT DATE: 20161121
